FAERS Safety Report 5420095-6 (Version None)
Quarter: 2007Q3

REPORT INFORMATION
  Report Type: 
  Country: None (occurrence: None)
  Receive Date: 20070820
  Receipt Date: 20070810
  Transmission Date: 20080115
  Serious: Yes (Other)
  Sender: FDA-Public Use
  Company Number: GB-PFIZER INC-2007067627

PATIENT
  Age: 55 Year
  Sex: Male
  Weight: 97 kg

DRUGS (2)
  1. VARENICLINE TABLETS [Suspect]
     Indication: SMOKING CESSATION THERAPY
     Route: 048
     Dates: start: 20070105, end: 20070412
  2. FLUOXETINE [Concomitant]
     Indication: DEPRESSION
     Route: 048

REACTIONS (2)
  - DEPRESSION [None]
  - HYPOTHYROIDISM [None]
